FAERS Safety Report 8219446-9 (Version None)
Quarter: 2012Q1

REPORT INFORMATION
  Report Type: 
  Country: None (occurrence: None)
  Receive Date: 20120319
  Receipt Date: 20120307
  Transmission Date: 20120608
  Serious: Yes (Other)
  Sender: FDA-Public Use
  Company Number: US-ELI_LILLY_AND_COMPANY-US201203002305

PATIENT
  Sex: Female

DRUGS (2)
  1. HUMALOG MIX 75/25 [Suspect]
     Dosage: UNK UNK, PRN
  2. HUMALOG MIX 75/25 [Suspect]
     Dosage: UNK, PRN

REACTIONS (2)
  - CHEMOTHERAPY [None]
  - RADIOTHERAPY [None]
